FAERS Safety Report 8865813 (Version 1)
Quarter: 2012Q4

REPORT INFORMATION
  Report Type: 
  Country: US (occurrence: US)
  Receive Date: 20121024
  Receipt Date: 20121024
  Transmission Date: 20130627
  Serious: No
  Sender: FDA-Public Use
  Company Number: US-AMGEN-USASP2011063029

PATIENT
  Age: 51 Year
  Sex: Female
  Weight: 79.37 kg

DRUGS (2)
  1. ENBREL [Suspect]
     Indication: PSORIATIC ARTHROPATHY
     Dosage: 50 mg, qwk
     Route: 030
     Dates: start: 20080929
  2. METHOTREXATE [Concomitant]

REACTIONS (3)
  - Erythema [Recovered/Resolved]
  - Incorrect route of drug administration [Unknown]
  - Injection site reaction [Recovered/Resolved]
